FAERS Safety Report 5110095-8 (Version None)
Quarter: 2006Q3

REPORT INFORMATION
  Report Type: 
  Country: None (occurrence: None)
  Receive Date: 20060919
  Receipt Date: 20060919
  Transmission Date: 20061208
  Serious: Yes (Other)
  Sender: FDA-Public Use
  Company Number: None

PATIENT
  Sex: Female
  Weight: 58.0604 kg

DRUGS (2)
  1. VANCOMYCIN [Suspect]
     Indication: PROPHYLAXIS
     Dosage: 1 GRAM Q 12 HOURS IV ONLY RECEIVED 2 DOSES
     Route: 042
     Dates: start: 20060613, end: 20060613
  2. TRASYLOL [Suspect]
     Dosage: 600ML INTRAOPERATIVE  ONLY IV DRIP
     Route: 041
     Dates: start: 20060613, end: 20060613

REACTIONS (1)
  - DEAFNESS NEUROSENSORY [None]
